FAERS Safety Report 6138095-X (Version None)
Quarter: 2009Q1

REPORT INFORMATION
  Report Type: 
  Country: None (occurrence: None)
  Receive Date: 20090327
  Receipt Date: 20090305
  Transmission Date: 20090719
  Serious: Yes (Other)
  Sender: FDA-Public Use
  Company Number: DSA_33334_2009

PATIENT
  Age: 66 Year
  Sex: Female
  Weight: 91 kg

DRUGS (20)
  1. TIAZAC [Suspect]
     Indication: DRUG USE FOR UNKNOWN INDICATION
     Dosage: (240 MG QD ORAL)
     Route: 048
  2. ALTACE [Concomitant]
  3. ARTHROTEC [Concomitant]
  4. CANESTEN /00212501/ [Concomitant]
  5. DOMPERIDONE [Concomitant]
  6. ASPIRIN 10GR TIMED DISINTEGRATION TAB [Concomitant]
  7. FLOVENT [Concomitant]
  8. HYDROCORTISONE [Concomitant]
  9. IMDUR [Concomitant]
  10. IMOVANE [Concomitant]
  11. LASIX [Concomitant]
  12. LIPITOR [Concomitant]
  13. LN2 [Concomitant]
  14. NASONEX [Concomitant]
  15. NOVAHISTEX /00083101/ [Concomitant]
  16. OCUVITE /01053801/ [Concomitant]
  17. PARIET [Concomitant]
  18. PLAVIX [Concomitant]
  19. TIAZAC /00489702/ [Concomitant]
  20. UNIDET [Concomitant]

REACTIONS (5)
  - ABDOMINAL PAIN UPPER [None]
  - ARTHRALGIA [None]
  - DYSPHAGIA [None]
  - JOINT SWELLING [None]
  - MUSCULOSKELETAL CHEST PAIN [None]
